FAERS Safety Report 7121542-4 (Version None)
Quarter: 2010Q4

REPORT INFORMATION
  Report Type: 
  Country: None (occurrence: None)
  Receive Date: 20101119
  Receipt Date: 20101119
  Transmission Date: 20110411
  Serious: Yes (Hospitalization)
  Sender: FDA-Public Use
  Company Number: None

PATIENT
  Age: 67 Year
  Sex: Male
  Weight: 82 kg

DRUGS (1)
  1. INSULIN [Suspect]
     Indication: TYPE 1 DIABETES MELLITUS
     Dosage: 35 UNITS EVERY DAY SQ
     Route: 058
     Dates: start: 20081223, end: 20101114

REACTIONS (2)
  - HYPOGLYCAEMIA [None]
  - SYNCOPE [None]
